FAERS Safety Report 13287831 (Version 3)
Quarter: 2017Q1

REPORT INFORMATION
  Report Type: Spontaneous
  Country: IT (occurrence: IT)
  Receive Date: 20170302
  Receipt Date: 20170324
  Transmission Date: 20170428
  Serious: Yes (Hospitalization, Other)
  Sender: FDA-Public Use
  Company Number: IT-GILEAD-2017-0259965

PATIENT
  Age: 74 Year
  Sex: Male

DRUGS (7)
  1. LEVOMEFOLIC ACID [Concomitant]
     Active Substance: LEVOMEFOLIC ACID
     Indication: NUTRITIONAL SUPPLEMENTATION
     Route: 065
  2. BETOTAL 12 [Concomitant]
     Indication: NUTRITIONAL SUPPLEMENTATION
     Route: 065
  3. LUVION                             /00252501/ [Concomitant]
     Active Substance: CANRENONE
     Route: 048
  4. HARVONI [Suspect]
     Active Substance: LEDIPASVIR\SOFOSBUVIR
     Indication: CHRONIC HEPATITIS C
     Dosage: 1 DF, QD
     Route: 048
  5. LASIX [Concomitant]
     Active Substance: FUROSEMIDE
     Route: 048
  6. ALDACTONE [Concomitant]
     Active Substance: SPIRONOLACTONE
     Dosage: UNK
     Route: 048
  7. KONAKION [Concomitant]
     Active Substance: PHYTONADIONE
     Route: 065

REACTIONS (1)
  - Ascites [Not Recovered/Not Resolved]

NARRATIVE: CASE EVENT DATE: 20170213
